FAERS Safety Report 10927949 (Version 1)
Quarter: 2015Q1

REPORT INFORMATION
  Report Type: Spontaneous
  Country: None (occurrence: None)
  Receive Date: 20150316
  Receipt Date: 20150316
  Transmission Date: 20150721
  Serious: Yes (Other)
  Sender: FDA-Public Use
  Company Number: None

PATIENT
  Age: 45 Year
  Sex: Female

DRUGS (1)
  1. FLUOXETINE [Suspect]
     Active Substance: FLUOXETINE\FLUOXETINE HYDROCHLORIDE
     Indication: DEPRESSION
     Dosage: 4
     Route: 048
     Dates: start: 20150217, end: 20150312

REACTIONS (4)
  - Product substitution issue [None]
  - Drug ineffective [None]
  - Product quality issue [None]
  - Suicidal ideation [None]

NARRATIVE: CASE EVENT DATE: 20150301
